FAERS Safety Report 4353526-3 (Version None)
Quarter: 2004Q2

REPORT INFORMATION
  Report Type: 
  Country: None (occurrence: None)
  Receive Date: 20040430
  Receipt Date: 20040416
  Transmission Date: 20050107
  Serious: Yes (Hospitalization)
  Sender: FDA-Public Use
  Company Number: 2004SE02249

PATIENT
  Age: 30 Year
  Sex: Male
  Weight: 83 kg

DRUGS (2)
  1. SEROQUEL [Suspect]
     Indication: ALCOHOLISM
     Dosage: 100 MG DAILY PO
     Route: 048
     Dates: start: 20040126, end: 20040405
  2. NALTREXONE HCL [Suspect]
     Indication: ALCOHOLISM
     Dosage: 50 MG DAILY PO
     Route: 048
     Dates: start: 20040126

REACTIONS (1)
  - ACUTE TONSILLITIS [None]
